FAERS Safety Report 6978349-8 (Version None)
Quarter: 2010Q3

REPORT INFORMATION
  Report Type: 
  Country: None (occurrence: None)
  Receive Date: 20100913
  Receipt Date: 20100830
  Transmission Date: 20110219
  Serious: Yes (Hospitalization, Other)
  Sender: FDA-Public Use
  Company Number: PHHY2010FR49535

PATIENT
  Sex: Male
  Weight: 71 kg

DRUGS (2)
  1. EXELON [Suspect]
     Indication: DEMENTIA ALZHEIMER'S TYPE
     Dosage: 9.5 MG, DAILY
     Route: 062
     Dates: start: 20100106, end: 20100515
  2. PAROXETINE HCL [Concomitant]
     Dosage: 20 MG, PER DAY
     Dates: start: 20100317

REACTIONS (5)
  - DRUG INTOLERANCE [None]
  - GAMMA-GLUTAMYLTRANSFERASE INCREASED [None]
  - HEPATITIS [None]
  - PYREXIA [None]
  - TRANSAMINASES INCREASED [None]
